FAERS Safety Report 20222347 (Version 1)
Quarter: 2021Q4

REPORT INFORMATION
  Report Type: Spontaneous
  Country: ES (occurrence: ES)
  Receive Date: 20211223
  Receipt Date: 20211223
  Transmission Date: 20220304
  Serious: Yes (Hospitalization)
  Sender: FDA-Public Use
  Company Number: ES-MYLANLABS-2021M1094942

PATIENT
  Age: 52 Year
  Sex: Female

DRUGS (1)
  1. ACETAMINOPHEN [Suspect]
     Active Substance: ACETAMINOPHEN
     Indication: Product used for unknown indication
     Dosage: ACUTE INGESTION OF A TOXIC AMOUNT OF PARACETAMOL
     Route: 048

REACTIONS (7)
  - Overdose [Recovering/Resolving]
  - Toxicity to various agents [Recovering/Resolving]
  - Acidosis [Recovered/Resolved]
  - Nausea [Recovering/Resolving]
  - Discomfort [Recovering/Resolving]
  - Hepatic enzyme increased [Recovering/Resolving]
  - Blood lactic acid increased [Recovered/Resolved]
